FAERS Safety Report 22602657 (Version 2)
Quarter: 2023Q2

REPORT INFORMATION
  Report Type: Report from Study
  Country: US (occurrence: US)
  Receive Date: 20230615
  Receipt Date: 20230615
  Transmission Date: 20230721
  Serious: Yes (Hospitalization)
  Sender: FDA-Public Use
  Company Number: US-002147023-NVSC2023US134847

PATIENT
  Age: 50 Year
  Sex: Male
  Weight: 60.1 kg

DRUGS (4)
  1. LAMPRENE [Suspect]
     Active Substance: CLOFAZIMINE
     Indication: Mycobacterium abscessus infection
     Dosage: 100 MG
     Route: 048
     Dates: start: 20230518, end: 20230606
  2. LINEZOLID [Suspect]
     Active Substance: LINEZOLID
     Indication: Mycobacterial infection
     Dosage: 600 MG
     Route: 065
     Dates: start: 20230510, end: 20230602
  3. IMIPENEM [Concomitant]
     Active Substance: IMIPENEM
     Indication: Mycobacterial infection
     Dosage: 1 G, Q12H
     Route: 042
     Dates: start: 20230303, end: 20230605
  4. AMANTADINE [Concomitant]
     Active Substance: AMANTADINE
     Indication: Mycobacterial infection
     Dosage: 100 MG
     Route: 042
     Dates: start: 20230303, end: 20230605

REACTIONS (4)
  - Malaise [Recovering/Resolving]
  - Nausea [Recovering/Resolving]
  - Dehydration [Recovering/Resolving]
  - Vomiting [Recovering/Resolving]

NARRATIVE: CASE EVENT DATE: 20230606
